FAERS Safety Report 12619095 (Version 1)
Quarter: 2016Q3

REPORT INFORMATION
  Report Type: Report from Study
  Country: IT (occurrence: IT)
  Receive Date: 20160803
  Receipt Date: 20160803
  Transmission Date: 20161109
  Serious: Yes (Hospitalization, Other)
  Sender: FDA-Public Use
  Company Number: IT-BIOGEN-2015BI075742

PATIENT
  Age: 40 Year
  Sex: Male

DRUGS (1)
  1. TYSABRI [Suspect]
     Active Substance: NATALIZUMAB
     Indication: MULTIPLE SCLEROSIS
     Route: 042
     Dates: start: 20100526, end: 20150526

REACTIONS (2)
  - Immune reconstitution inflammatory syndrome [Unknown]
  - Progressive multifocal leukoencephalopathy [Recovered/Resolved]

NARRATIVE: CASE EVENT DATE: 20150526
